FAERS Safety Report 11859152 (Version 1)
Quarter: 2015Q4

REPORT INFORMATION
  Report Type: Report from Study
  Country: HR (occurrence: HR)
  Receive Date: 20151222
  Receipt Date: 20151222
  Transmission Date: 20160305
  Serious: Yes (Hospitalization)
  Sender: FDA-Public Use
  Company Number: HR-ROCHE-1678945

PATIENT
  Age: 64 Year
  Sex: Male

DRUGS (6)
  1. FERRIC SODIUM GLUCONATE COMPLEX [Concomitant]
     Indication: ANAEMIA
     Route: 042
     Dates: start: 2014
  2. DECORTIN [Suspect]
     Active Substance: PREDNISONE
     Indication: PROPHYLAXIS AGAINST TRANSPLANT REJECTION
     Route: 048
     Dates: start: 19911203
  3. MYCOPHENOLATE MOFETIL. [Suspect]
     Active Substance: MYCOPHENOLATE MOFETIL
     Indication: PROPHYLAXIS AGAINST TRANSPLANT REJECTION
     Route: 048
     Dates: start: 20041126
  4. CONTROLOC [Concomitant]
     Active Substance: PANTOPRAZOLE SODIUM
     Indication: PROPHYLAXIS
     Route: 048
     Dates: start: 2011
  5. FOLACIN [Concomitant]
     Active Substance: FOLIC ACID
     Indication: ANAEMIA
     Route: 048
     Dates: start: 20150202
  6. SANDIMMUN NEORAL [Suspect]
     Active Substance: CYCLOSPORINE
     Indication: RENAL TRANSPLANT
     Route: 048
     Dates: start: 19950901

REACTIONS (11)
  - General physical health deterioration [Recovered/Resolved]
  - C-reactive protein increased [Unknown]
  - Blood urea increased [Unknown]
  - Gastrointestinal disorder [Recovered/Resolved]
  - Toxicity to various agents [Recovered/Resolved with Sequelae]
  - Blood creatinine increased [Unknown]
  - Klebsiella sepsis [Recovered/Resolved]
  - Haemoglobin decreased [Unknown]
  - Immunosuppressant drug level increased [Recovered/Resolved]
  - Klebsiella bacteraemia [Recovered/Resolved]
  - Pyrexia [Recovered/Resolved]

NARRATIVE: CASE EVENT DATE: 20150224
